FAERS Safety Report 9005519 (Version 5)
Quarter: 2015Q1

REPORT INFORMATION
  Report Type: Spontaneous
  Country: US (occurrence: US)
  Receive Date: 20130109
  Receipt Date: 20150211
  Transmission Date: 20150721
  Serious: Yes (Other)
  Sender: FDA-Public Use
  Company Number: US-009507513-1301USA002418

PATIENT
  Sex: Male
  Weight: 81.63 kg

DRUGS (2)
  1. PROPECIA [Suspect]
     Active Substance: FINASTERIDE
     Indication: ALOPECIA
     Dosage: 1 MG, QD
     Route: 048
     Dates: start: 20031006, end: 20050320
  2. PROSCAR [Suspect]
     Active Substance: FINASTERIDE
     Indication: ALOPECIA
     Dosage: 5 MG TAB CUT INTO 4 PIECES
     Route: 048
     Dates: start: 200504

REACTIONS (47)
  - Painful ejaculation [Unknown]
  - Dysphagia [Unknown]
  - Polyuria [Unknown]
  - Loss of libido [Unknown]
  - Choking sensation [Unknown]
  - Sensory loss [Unknown]
  - Wrong technique in drug usage process [Unknown]
  - Hydrocele [Unknown]
  - Ear infection [Unknown]
  - Urinary retention [Unknown]
  - Back pain [Unknown]
  - Depression suicidal [Not Recovered/Not Resolved]
  - Blood cholesterol increased [Unknown]
  - Testicular disorder [Unknown]
  - Vision blurred [Unknown]
  - Eye pain [Unknown]
  - Neck pain [Unknown]
  - Amnesia [Unknown]
  - Sexual dysfunction [Not Recovered/Not Resolved]
  - Swelling face [Unknown]
  - Testicular pain [Recovered/Resolved]
  - Ejaculation failure [Unknown]
  - Epididymal cyst [Unknown]
  - Urinary hesitation [Unknown]
  - Insomnia [Unknown]
  - Male orgasmic disorder [Unknown]
  - Depression [Unknown]
  - Cognitive disorder [Not Recovered/Not Resolved]
  - Head discomfort [Unknown]
  - Sexual relationship change [Unknown]
  - Headache [Unknown]
  - Diplopia [Unknown]
  - Sinus disorder [Unknown]
  - Nocturia [Unknown]
  - Arthralgia [Unknown]
  - Erectile dysfunction [Unknown]
  - Drug administration error [Unknown]
  - Varicocele [Unknown]
  - Dysuria [Unknown]
  - Dizziness [Unknown]
  - Tremor [Unknown]
  - Semen volume decreased [Unknown]
  - Asthma [Unknown]
  - Fatigue [Unknown]
  - Constipation [Unknown]
  - Urinary straining [Unknown]
  - Hypoaesthesia [Unknown]

NARRATIVE: CASE EVENT DATE: 200407
